FAERS Safety Report 10100351 (Version 1)
Quarter: 2014Q2

REPORT INFORMATION
  Report Type: Report from Study
  Country: BR (occurrence: BR)
  Receive Date: 20140423
  Receipt Date: 20140423
  Transmission Date: 20141212
  Serious: Yes (Other)
  Sender: FDA-Public Use
  Company Number: PHHY2014BR047012

PATIENT
  Age: 64 Year
  Sex: Female

DRUGS (1)
  1. SANDOSTATIN LAR [Suspect]
     Dosage: 20 MG, ONCE IN MONTH

REACTIONS (6)
  - Gigantism [Recovering/Resolving]
  - Malaise [Recovering/Resolving]
  - Gait disturbance [Recovering/Resolving]
  - Kyphosis [Recovering/Resolving]
  - Peripheral swelling [Recovering/Resolving]
  - Hypertension [Recovering/Resolving]
